FAERS Safety Report 23813522 (Version 1)
Quarter: 2024Q2

REPORT INFORMATION
  Report Type: Spontaneous
  Country: TW (occurrence: TW)
  Receive Date: 20240503
  Receipt Date: 20240503
  Transmission Date: 20240715
  Serious: Yes (Death, Hospitalization, Other)
  Sender: FDA-Public Use
  Company Number: TW-AMGEN-TWNSP2024082946

PATIENT
  Age: 78 Year
  Sex: Male

DRUGS (2)
  1. BEVACIZUMAB [Suspect]
     Active Substance: BEVACIZUMAB
     Indication: Hepatocellular carcinoma
     Dosage: UNK
     Route: 065
  2. ATEZOLIZUMAB [Concomitant]
     Active Substance: ATEZOLIZUMAB
     Indication: Hepatocellular carcinoma
     Dosage: THREE CYCLES, EACH ADMINISTERED EVERY THREE WEEKS
     Route: 065

REACTIONS (6)
  - Cardiac disorder [Fatal]
  - Myasthenia gravis [Recovered/Resolved]
  - Brucella sepsis [Recovered/Resolved]
  - Coronary artery stenosis [Unknown]
  - Acute myocardial infarction [Unknown]
  - Off label use [Unknown]
